FAERS Safety Report 9670464 (Version 2)
Quarter: 2013Q4

REPORT INFORMATION
  Report Type: Spontaneous
  Country: FR (occurrence: FR)
  Receive Date: 20131106
  Receipt Date: 20131213
  Transmission Date: 20140711
  Serious: Yes (Hospitalization, Other)
  Sender: FDA-Public Use
  Company Number: FR-AMGEN-FRASP2013077602

PATIENT
  Age: 53 Year
  Sex: Female
  Weight: 90 kg

DRUGS (10)
  1. ENBREL [Suspect]
     Indication: ANKYLOSING SPONDYLITIS
     Dosage: 50 MG, WEEKLY
     Route: 058
     Dates: start: 20121109, end: 20121222
  2. CARTREX [Concomitant]
     Indication: ANKYLOSING SPONDYLITIS
     Dosage: UNK
     Dates: start: 201110
  3. ZONDAR [Concomitant]
     Dosage: UNK
  4. LANSOPRAZOLE [Concomitant]
     Dosage: UNK
  5. ZELITREX [Concomitant]
     Dosage: UNK
  6. MICARDIS [Concomitant]
     Dosage: UNK
  7. TANAKAN [Concomitant]
     Dosage: UNK
  8. XALATAN [Concomitant]
     Dosage: UNK
  9. DOLIPRANE [Concomitant]
     Dosage: UNK
  10. LUMIRELAX                          /01313101/ [Concomitant]
     Dosage: UNK

REACTIONS (2)
  - Urticaria [Recovered/Resolved]
  - Angioedema [Recovered/Resolved]
